FAERS Safety Report 6812394-8 (Version None)
Quarter: 2010Q3

REPORT INFORMATION
  Report Type: 
  Country: None (occurrence: None)
  Receive Date: 20100701
  Receipt Date: 20100621
  Transmission Date: 20110219
  Serious: Yes (Other)
  Sender: FDA-Public Use
  Company Number: US-JNJFOC-20100607128

PATIENT
  Sex: Female
  Weight: 99.79 kg

DRUGS (7)
  1. REMICADE [Suspect]
     Indication: RHEUMATOID ARTHRITIS
     Route: 042
  2. REMICADE [Suspect]
     Indication: CROHN'S DISEASE
     Route: 042
  3. ASACOL [Concomitant]
     Indication: CROHN'S DISEASE
  4. PREDNISONE TAB [Concomitant]
     Indication: CROHN'S DISEASE
  5. PRILOSEC [Concomitant]
  6. IMODIUM [Concomitant]
  7. DARVOCET [Concomitant]

REACTIONS (3)
  - ANAPHYLACTIC SHOCK [None]
  - BURNING SENSATION [None]
  - INFUSION RELATED REACTION [None]
